FAERS Safety Report 6742676-X (Version None)
Quarter: 2010Q2

REPORT INFORMATION
  Report Type: 
  Country: None (occurrence: None)
  Receive Date: 20100526
  Receipt Date: 20090616
  Transmission Date: 20101027
  Serious: No
  Sender: FDA-Public Use
  Company Number: US-ABBOTT-09P-163-0580369-00

PATIENT
  Sex: Male
  Weight: 64.922 kg

DRUGS (1)
  1. ZEMPLAR [Suspect]
     Indication: RENAL FAILURE
     Route: 048
     Dates: start: 20090201, end: 20090610

REACTIONS (1)
  - DRUG LEVEL INCREASED [None]
